FAERS Safety Report 10733150 (Version 1)
Quarter: 2015Q1

REPORT INFORMATION
  Report Type: Spontaneous
  Country: DE (occurrence: None)
  Receive Date: 20150120
  Receipt Date: 20150120
  Transmission Date: 20150721
  Serious: Yes (Other)
  Sender: FDA-Public Use
  Company Number: FK201500217

PATIENT
  Age: 75 Year
  Sex: Male

DRUGS (2)
  1. NAB PACLITAXEL [Suspect]
     Active Substance: PACLITAXEL
     Indication: PANCREATIC CARCINOMA METASTATIC
     Dosage: 125 MG/M2, ON DAYS 1, 8 AND 15 OF A 28-DAY CYCLE
  2. GEMCITABINE [Suspect]
     Active Substance: GEMCITABINE\GEMCITABINE HYDROCHLORIDE
     Indication: PANCREATIC CARCINOMA METASTATIC
     Dosage: 1000 MG/M2, ON DAYS 1, 8 AND 15 OF A 28-DAY CYCLE

REACTIONS (11)
  - Haematotoxicity [None]
  - Malignant neoplasm progression [None]
  - Neutropenia [None]
  - Cholangitis acute [None]
  - Thrombocytopenia [None]
  - Anaemia [None]
  - Fatigue [None]
  - Pancreatic carcinoma metastatic [None]
  - Polyneuropathy [None]
  - Diarrhoea [None]
  - Localised infection [None]
